FAERS Safety Report 6146773-1 (Version None)
Quarter: 2009Q2

REPORT INFORMATION
  Report Type: 
  Country: None (occurrence: None)
  Receive Date: 20090403
  Receipt Date: 20090403
  Transmission Date: 20091009
  Serious: No
  Sender: FDA-Public Use
  Company Number: None

PATIENT
  Age: 56 Year
  Sex: Female
  Weight: 56.6996 kg

DRUGS (1)
  1. KENALOG-40 [Suspect]
     Indication: BACK PAIN
     Dosage: 2 INJECTIONS ONCE EPIDURAL
     Route: 008
     Dates: start: 20090224, end: 20090224

REACTIONS (8)
  - ASTHENIA [None]
  - HYPOAESTHESIA [None]
  - NEURALGIA [None]
  - NEUROPATHY PERIPHERAL [None]
  - PARAESTHESIA [None]
  - PRURITUS [None]
  - SENSORY DISTURBANCE [None]
  - TREMOR [None]
